FAERS Safety Report 14188198 (Version 3)
Quarter: 2018Q1

REPORT INFORMATION
  Report Type: Report from Study
  Country: US (occurrence: CA)
  Receive Date: 20171114
  Receipt Date: 20180319
  Transmission Date: 20180508
  Serious: Yes (Other)
  Sender: FDA-Public Use
  Company Number: US-SUNOVION-2017SUN004902

PATIENT
  Sex: Female

DRUGS (15)
  1. XOLAIR [Suspect]
     Active Substance: OMALIZUMAB
     Dosage: UNK (REGIMEN #4)
     Route: 058
     Dates: start: 20170822
  2. ATROVENT [Concomitant]
     Active Substance: IPRATROPIUM BROMIDE
     Dosage: 20 MG, UNK
  3. XOLAIR [Suspect]
     Active Substance: OMALIZUMAB
     Dosage: UNK (REGIMEN #5)
     Route: 058
     Dates: start: 20170919
  4. SPIRIVA [Concomitant]
     Active Substance: TIOTROPIUM BROMIDE MONOHYDRATE
  5. XOLAIR [Suspect]
     Active Substance: OMALIZUMAB
     Indication: ASTHMA
     Dosage: UNK (REGIMEN #1)
     Route: 058
     Dates: start: 20170531
  6. GLYCOPYRROLATE. [Suspect]
     Active Substance: GLYCOPYRROLATE
     Indication: ASTHMA
     Dosage: UNK, UNK
     Route: 055
     Dates: start: 201602, end: 201607
  7. XOLAIR [Suspect]
     Active Substance: OMALIZUMAB
     Dosage: UNK (REGIMEN #3)
     Route: 058
     Dates: start: 20170725
  8. XOLAIR [Suspect]
     Active Substance: OMALIZUMAB
     Dosage: UNK (REGIMEN #6)
     Route: 058
     Dates: start: 20171017
  9. VENTOLIN [Concomitant]
     Active Substance: ALBUTEROL SULFATE
     Dosage: 100 ?G, UNK
  10. SYMBICORT [Concomitant]
     Active Substance: BUDESONIDE\FORMOTEROL FUMARATE DIHYDRATE
     Dosage: UNK
     Dates: end: 2016
  11. XOLAIR [Suspect]
     Active Substance: OMALIZUMAB
     Dosage: UNK, UNK (REGIMEN #8)
     Dates: start: 20180208
  12. ADVAIR HFA [Concomitant]
     Active Substance: FLUTICASONE PROPIONATE\SALMETEROL XINAFOATE
     Dosage: 25 ?G, UNK
  13. XOLAIR [Suspect]
     Active Substance: OMALIZUMAB
     Dosage: 300 MG, EVERY FOUR (4) WEEKS (REGIMEN #7)
     Route: 058
     Dates: start: 20180111
  14. MONTELUKAST [Suspect]
     Active Substance: MONTELUKAST SODIUM
     Indication: ASTHMA
     Dosage: 10 MG, UNK
  15. XOLAIR [Suspect]
     Active Substance: OMALIZUMAB
     Indication: ASTHMA
     Dosage: UNK, (REGIMEN #2)
     Route: 058
     Dates: start: 20170628

REACTIONS (22)
  - Rhinorrhoea [Unknown]
  - Cough [Unknown]
  - Limb discomfort [Unknown]
  - Dizziness [Recovered/Resolved]
  - Dizziness [Recovering/Resolving]
  - Paralysis [Unknown]
  - Peripheral swelling [Unknown]
  - Nasal congestion [Unknown]
  - Lung disorder [Unknown]
  - Pain in extremity [Not Recovered/Not Resolved]
  - Nausea [Unknown]
  - Product use in unapproved indication [Unknown]
  - Throat irritation [Unknown]
  - Headache [Recovered/Resolved]
  - Pain [Not Recovered/Not Resolved]
  - Hypoaesthesia [Recovered/Resolved]
  - Weight decreased [Unknown]
  - Paranasal sinus discomfort [Unknown]
  - Hypoaesthesia [Recovering/Resolving]
  - Oedema peripheral [Unknown]
  - Myalgia [Unknown]
  - Headache [Recovering/Resolving]
